FAERS Safety Report 25631589 (Version 2)
Quarter: 2025Q3

REPORT INFORMATION
  Report Type: Spontaneous
  Country: US (occurrence: US)
  Receive Date: 20250801
  Receipt Date: 20250814
  Transmission Date: 20251021
  Serious: Yes (Death, Life-Threatening, Hospitalization, Other)
  Sender: ALKEM
  Company Number: None

PATIENT
  Age: 71 Year
  Sex: Female

DRUGS (4)
  1. TACROLIMUS [Interacting]
     Active Substance: TACROLIMUS
     Indication: Immunosuppressant drug therapy
     Route: 065
  2. MYCOPHENOLATE MOFETIL [Suspect]
     Active Substance: MYCOPHENOLATE MOFETIL
     Indication: Immunosuppressant drug therapy
     Route: 065
  3. PAXLOVID [Interacting]
     Active Substance: NIRMATRELVIR\RITONAVIR
     Indication: COVID-19
     Route: 065
  4. PREDNISONE [Suspect]
     Active Substance: PREDNISONE
     Indication: Immunosuppressant drug therapy
     Route: 065

REACTIONS (13)
  - Cardiac arrest [Fatal]
  - Coma [Fatal]
  - Diarrhoea [Fatal]
  - Leukocytosis [Fatal]
  - Electrolyte imbalance [Fatal]
  - Hypomagnesaemia [Fatal]
  - Hypophosphataemia [Fatal]
  - Hypoxic-ischaemic encephalopathy [Fatal]
  - Metabolic acidosis [Fatal]
  - Toxicity to various agents [Fatal]
  - Drug interaction [Fatal]
  - Sepsis [Unknown]
  - COVID-19 [Unknown]
